FAERS Safety Report 9454455 (Version 3)
Quarter: 2013Q4

REPORT INFORMATION
  Report Type: Spontaneous
  Country: JP (occurrence: JP)
  Receive Date: 20130812
  Receipt Date: 20131223
  Transmission Date: 20140711
  Serious: Yes (Hospitalization, Other)
  Sender: FDA-Public Use
  Company Number: JP-BAYER-2013-080776

PATIENT
  Age: 77 Year
  Sex: Male
  Weight: 47.62 kg

DRUGS (12)
  1. NEXAVAR [Suspect]
     Indication: HEPATOCELLULAR CARCINOMA
     Dosage: DAILY DOSE 200 MG
     Route: 048
     Dates: start: 20130313, end: 20130320
  2. NEXAVAR [Suspect]
     Indication: HEPATOCELLULAR CARCINOMA
     Dosage: DAILY DOSE 400 MG
     Route: 048
     Dates: start: 20130321, end: 20130730
  3. NEXAVAR [Suspect]
     Indication: HEPATOCELLULAR CARCINOMA
     Dosage: 400 MG/DAY
     Route: 048
     Dates: end: 20130731
  4. ALDACTONE A [Concomitant]
     Indication: HEPATIC CIRRHOSIS
     Dosage: DAILY DOSE 25 MG
     Route: 048
     Dates: start: 20100913
  5. ALTAT [Concomitant]
     Indication: GASTRIC ULCER
     Dosage: DAILY DOSE 150 MG
     Route: 048
     Dates: start: 20100913
  6. ENTECAVIR [Concomitant]
     Indication: HEPATITIS B
     Dosage: DAILY DOSE 0.5 MG
     Route: 048
     Dates: start: 20101220
  7. LIVACT [Concomitant]
     Indication: HEPATIC CIRRHOSIS
     Dosage: DAILY DOSE 12.45 G
     Route: 048
     Dates: start: 20111031
  8. SELBEX [Concomitant]
     Indication: GASTRIC ULCER
     Dosage: DAILY DOSE 150 MG
     Route: 048
     Dates: start: 20100913
  9. LASIX [Concomitant]
     Indication: HEPATIC CIRRHOSIS
     Dosage: DAILY DOSE 10 MG
     Route: 048
     Dates: start: 20100913
  10. MYSLEE [Concomitant]
     Indication: INSOMNIA
     Dosage: DAILY DOSE 5 MG
     Route: 048
     Dates: start: 20110131
  11. LAC B [Concomitant]
     Indication: DIARRHOEA
     Dosage: DAILY DOSE 3 G
     Route: 048
     Dates: start: 20130624
  12. BARACLUDE [Concomitant]
     Indication: HEPATITIS B
     Dosage: DAILY DOSE .5 MG
     Route: 048
     Dates: start: 20101220

REACTIONS (5)
  - Melaena [Unknown]
  - Gastroenteritis Escherichia coli [Recovering/Resolving]
  - Hypertension [Recovering/Resolving]
  - Diarrhoea [Recovering/Resolving]
  - Abdominal pain lower [Recovering/Resolving]
